FAERS Safety Report 17483798 (Version 1)
Quarter: 2020Q1

REPORT INFORMATION
  Report Type: Spontaneous
  Country: US (occurrence: US)
  Receive Date: 20200302
  Receipt Date: 20200302
  Transmission Date: 20200409
  Serious: Yes (Hospitalization)
  Sender: FDA-Public Use
  Company Number: US-MYLANLABS-2020M1021138

PATIENT
  Age: 50 Year
  Sex: Female

DRUGS (1)
  1. DOXORUBICIN [Suspect]
     Active Substance: DOXORUBICIN
     Indication: HEPATOCELLULAR CARCINOMA
     Dosage: TRANSARTERIAL CHEMOEMBOLIZATION; TWO VIALS OF LC BEADS CONTAINING DOXIRUBICIN 100MG..
     Route: 013

REACTIONS (2)
  - Tumour lysis syndrome [Unknown]
  - Renal impairment [Unknown]
